FAERS Safety Report 6293271-0 (Version None)
Quarter: 2009Q3

REPORT INFORMATION
  Report Type: 
  Country: None (occurrence: None)
  Receive Date: 20090731
  Receipt Date: 20090722
  Transmission Date: 20100115
  Serious: Yes (Hospitalization)
  Sender: FDA-Public Use
  Company Number: IN-WATSON-2009-05764

PATIENT
  Age: 18 Year
  Sex: Male

DRUGS (3)
  1. CHLOROQUINE (WATSON LABORATORIES) [Suspect]
     Indication: PYREXIA
     Dosage: 600 MG, SINGLE
     Route: 048
  2. CHLOROQUINE (WATSON LABORATORIES) [Suspect]
     Dosage: 150 MG, BID
     Route: 048
  3. PARACETAMOL [Concomitant]
     Indication: PYREXIA
     Dosage: 500 MG, PRN

REACTIONS (1)
  - MANIA [None]
